FAERS Safety Report 20703400 (Version 1)
Quarter: 2022Q2

REPORT INFORMATION
  Report Type: Spontaneous
  Country: CA (occurrence: CA)
  Receive Date: 20220413
  Receipt Date: 20220413
  Transmission Date: 20220721
  Serious: Yes (Other)
  Sender: FDA-Public Use
  Company Number: CA-TEVA-2022-CA-2027097

PATIENT
  Age: 18 Year
  Sex: Male

DRUGS (9)
  1. FLUDARABINE [Suspect]
     Active Substance: FLUDARABINE PHOSPHATE
     Indication: Combined immunodeficiency
     Dosage: 30 MG/M2 DAILY;
     Route: 065
  2. FLUDARABINE [Suspect]
     Active Substance: FLUDARABINE PHOSPHATE
     Indication: Bone marrow conditioning regimen
  3. FLUDARABINE [Suspect]
     Active Substance: FLUDARABINE PHOSPHATE
     Indication: Allogenic stem cell transplantation
  4. ALEMTUZUMAB [Suspect]
     Active Substance: ALEMTUZUMAB
     Indication: Combined immunodeficiency
     Dosage: .2 MG/KG DAILY;
     Route: 065
  5. ALEMTUZUMAB [Suspect]
     Active Substance: ALEMTUZUMAB
     Indication: Bone marrow conditioning regimen
  6. ALEMTUZUMAB [Suspect]
     Active Substance: ALEMTUZUMAB
     Indication: Allogenic stem cell transplantation
  7. BUSULFAN [Suspect]
     Active Substance: BUSULFAN
     Indication: Combined immunodeficiency
     Route: 065
  8. BUSULFAN [Suspect]
     Active Substance: BUSULFAN
     Indication: Bone marrow conditioning regimen
     Route: 065
  9. BUSULFAN [Suspect]
     Active Substance: BUSULFAN
     Indication: Allogenic stem cell transplantation
     Route: 065

REACTIONS (6)
  - Acute kidney injury [Recovered/Resolved]
  - Cytomegalovirus infection reactivation [Recovered/Resolved]
  - Diarrhoea [Recovered/Resolved]
  - Gastrointestinal haemorrhage [Recovered/Resolved]
  - Norovirus infection [Recovered/Resolved]
  - Product use in unapproved indication [Recovered/Resolved]
